FAERS Safety Report 10930827 (Version 1)
Quarter: 2015Q1

REPORT INFORMATION
  Report Type: Spontaneous
  Country: US (occurrence: None)
  Receive Date: 20150318
  Receipt Date: 20150318
  Transmission Date: 20150721
  Serious: No
  Sender: FDA-Public Use
  Company Number: None

PATIENT
  Age: 50 Year
  Sex: Female

DRUGS (1)
  1. GLEEVEC [Suspect]
     Active Substance: IMATINIB MESYLATE
     Indication: GASTRIC CANCER
     Route: 048
     Dates: start: 20130319, end: 20150227

REACTIONS (4)
  - Pain in jaw [None]
  - Vision blurred [None]
  - Pain in extremity [None]
  - Tinnitus [None]

NARRATIVE: CASE EVENT DATE: 20150227
